FAERS Safety Report 5578228-7 (Version None)
Quarter: 2007Q4

REPORT INFORMATION
  Report Type: 
  Country: None (occurrence: None)
  Receive Date: 20071231
  Receipt Date: 20071221
  Transmission Date: 20080405
  Serious: Yes (Other)
  Sender: FDA-Public Use
  Company Number: US-PFIZER INC-2007107352

PATIENT
  Sex: Male
  Weight: 114 kg

DRUGS (3)
  1. CELEBREX [Suspect]
     Indication: ARTHRITIS
  2. NEXIUM [Concomitant]
  3. ASPIRIN [Concomitant]

REACTIONS (1)
  - SKIN CANCER [None]
